FAERS Safety Report 21964275 (Version 3)
Quarter: 2023Q4

REPORT INFORMATION
  Report Type: Spontaneous
  Country: US (occurrence: US)
  Receive Date: 20230207
  Receipt Date: 20231121
  Transmission Date: 20240109
  Serious: Yes (Other)
  Sender: FDA-Public Use
  Company Number: US-MLMSERVICE-20230126-4062343-1

PATIENT
  Age: 51 Year
  Sex: Female

DRUGS (8)
  1. DOXORUBICIN HYDROCHLORIDE [Suspect]
     Active Substance: DOXORUBICIN HYDROCHLORIDE
     Indication: Tropical spastic paresis
     Dosage: UNK UNK, CYCLIC, (BV-CHP REGIMEN)
  2. DOXORUBICIN HYDROCHLORIDE [Suspect]
     Active Substance: DOXORUBICIN HYDROCHLORIDE
     Indication: Adult T-cell lymphoma/leukaemia stage III
  3. BRENTUXIMAB VEDOTIN [Suspect]
     Active Substance: BRENTUXIMAB VEDOTIN
     Indication: Tropical spastic paresis
     Dosage: UNK UNK, CYCLIC,(BV-CHP REGIMEN)
  4. BRENTUXIMAB VEDOTIN [Suspect]
     Active Substance: BRENTUXIMAB VEDOTIN
     Indication: Adult T-cell lymphoma/leukaemia stage III
  5. CYCLOPHOSPHAMIDE [Suspect]
     Active Substance: CYCLOPHOSPHAMIDE
     Indication: Tropical spastic paresis
     Dosage: UNK, CYCLIC,(BV-CHP REGIMEN)
  6. CYCLOPHOSPHAMIDE [Suspect]
     Active Substance: CYCLOPHOSPHAMIDE
     Indication: Adult T-cell lymphoma/leukaemia stage III
  7. PREDNISONE [Suspect]
     Active Substance: PREDNISONE
     Indication: Adult T-cell lymphoma/leukaemia stage III
     Dosage: UNK, CYCLIC,(BV-CHP REGIMEN)
  8. PREDNISONE [Suspect]
     Active Substance: PREDNISONE
     Indication: Tropical spastic paresis

REACTIONS (1)
  - Febrile neutropenia [Unknown]
